FAERS Safety Report 8599212-5 (Version None)
Quarter: 2012Q3

REPORT INFORMATION
  Report Type: 
  Country: None (occurrence: None)
  Receive Date: 20120816
  Receipt Date: 20110826
  Transmission Date: 20120928
  Serious: No
  Sender: FDA-Public Use
  Company Number: US-AMGEN-USASP2011044066

PATIENT
  Sex: Male

DRUGS (2)
  1. NEUPOGEN [Suspect]
     Indication: PRODUCT USED FOR UNKNOWN INDICATION
     Dosage: 480 MUG, Q3WK
     Dates: start: 20050101, end: 20100101
  2. NEUPOGEN [Suspect]
     Indication: BONE MARROW TRANSPLANT

REACTIONS (1)
  - INFLUENZA LIKE ILLNESS [None]
